FAERS Safety Report 6928889-2 (Version None)
Quarter: 2010Q3

REPORT INFORMATION
  Report Type: 
  Country: None (occurrence: None)
  Receive Date: 20100817
  Receipt Date: 20100813
  Transmission Date: 20110219
  Serious: Yes (Hospitalization)
  Sender: FDA-Public Use
  Company Number: NZ-ROXANE LABORATORIES, INC.-2010-DE-04438GD

PATIENT
  Age: 63 Year
  Sex: Female

DRUGS (2)
  1. CODEINE [Suspect]
  2. NUROFEN PLUS [Suspect]
     Dosage: 4 G IBUPROFEN + 256 MG CODEINE

REACTIONS (3)
  - DRUG DEPENDENCE [None]
  - GASTRIC ULCER [None]
  - INTENTIONAL DRUG MISUSE [None]
